FAERS Safety Report 5098513-5 (Version None)
Quarter: 2006Q3

REPORT INFORMATION
  Report Type: 
  Country: None (occurrence: None)
  Receive Date: 20060906
  Receipt Date: 20060210
  Transmission Date: 20061208
  Serious: No
  Sender: FDA-Public Use
  Company Number: US-GLAXOSMITHKLINE-A0593252A

PATIENT
  Age: 63 Year
  Sex: Male

DRUGS (14)
  1. REQUIP [Suspect]
     Indication: RESTLESS LEGS SYNDROME
     Dosage: .5MG PER DAY
     Route: 048
     Dates: start: 20060209
  2. CYMBALTA [Concomitant]
  3. KLONOPIN [Concomitant]
  4. OXYCONTIN [Concomitant]
  5. OXYCODONE HCL [Concomitant]
  6. DEPAKOTE [Concomitant]
  7. FLOMAX [Concomitant]
  8. NORVASC [Concomitant]
  9. GLIPIZIDE [Concomitant]
  10. GEMFIBROZIL [Concomitant]
  11. METFORMIN HCL [Concomitant]
  12. LYRICA [Concomitant]
  13. HYDROXYZINE [Concomitant]
  14. NEXIUM [Concomitant]

REACTIONS (4)
  - ABDOMINAL PAIN UPPER [None]
  - DYSPNOEA [None]
  - HEART RATE INCREASED [None]
  - TREMOR [None]
